FAERS Safety Report 23479224 (Version 1)
Quarter: 2024Q1

REPORT INFORMATION
  Report Type: Report from Study
  Country: US (occurrence: US)
  Receive Date: 20240205
  Receipt Date: 20240205
  Transmission Date: 20240410
  Serious: No
  Sender: FDA-Public Use
  Company Number: US-ACADIA PHARMACEUTICALS INC.-ACA-2024-PIM-000218

PATIENT
  Age: 95 Year
  Sex: Female

DRUGS (12)
  1. NUPLAZID [Suspect]
     Active Substance: PIMAVANSERIN TARTRATE
     Indication: Parkinson^s disease
     Dosage: 34 MILLIGRAM, QD
     Route: 048
     Dates: start: 20231130
  2. FEBUXOSTAT [Concomitant]
     Active Substance: FEBUXOSTAT
  3. COLCHICINE [Concomitant]
     Active Substance: COLCHICINE
  4. FUROSEMIDE [Concomitant]
     Active Substance: FUROSEMIDE
  5. DONEPEZIL [Concomitant]
     Active Substance: DONEPEZIL
  6. LISINOPRIL [Concomitant]
     Active Substance: LISINOPRIL
  7. ASPIRIN [Concomitant]
     Active Substance: ASPIRIN
  8. QUERCETIN [Concomitant]
     Active Substance: QUERCETIN
  9. QUETIAPINE [Concomitant]
     Active Substance: QUETIAPINE
  10. HYDRALAZINE [Concomitant]
     Active Substance: HYDRALAZINE HYDROCHLORIDE
  11. VITAMIN D NOS [Concomitant]
     Active Substance: VITAMIN D NOS
  12. ZINC [Concomitant]
     Active Substance: PYRITHIONE ZINC\ZINC\ZINC CHLORIDE

REACTIONS (3)
  - COVID-19 [Recovering/Resolving]
  - Psychotic disorder [Recovering/Resolving]
  - Blood pressure increased [Recovering/Resolving]

NARRATIVE: CASE EVENT DATE: 20240106
